FAERS Safety Report 17223161 (Version 6)
Quarter: 2020Q1

REPORT INFORMATION
  Report Type: Spontaneous
  Country: CA (occurrence: CA)
  Receive Date: 20200102
  Receipt Date: 20200313
  Transmission Date: 20200409
  Serious: Yes (Other)
  Sender: FDA-Public Use
  Company Number: CA-ORION CORPORATION ORION PHARMA-TREX2019-6198

PATIENT
  Age: 38 Year
  Sex: Female
  Weight: 66 kg

DRUGS (11)
  1. SULFASALAZINE. [Concomitant]
     Active Substance: SULFASALAZINE
     Route: 065
     Dates: start: 201909, end: 201912
  2. METHOTREXATE (TRADE NAME UNKNOWN) [Suspect]
     Active Substance: METHOTREXATE
     Indication: PRODUCT USED FOR UNKNOWN INDICATION
     Route: 048
     Dates: start: 201808
  3. ENTYVIO [Concomitant]
     Active Substance: VEDOLIZUMAB
     Dosage: EVERY
     Route: 065
     Dates: start: 201804
  4. ZOLPIDEM [Concomitant]
     Active Substance: ZOLPIDEM TARTRATE
     Indication: SLEEP DISORDER
     Dosage: EVERY NIGHT
     Route: 065
  5. CORTENEMA [Concomitant]
     Active Substance: HYDROCORTISONE
     Indication: CROHN^S DISEASE
     Dosage: EVERY NIGHT
     Route: 065
     Dates: start: 201506
  6. SALOFALK [Concomitant]
     Indication: CROHN^S DISEASE
     Route: 054
     Dates: start: 201506
  7. PROCTOL [Concomitant]
     Dosage: AS NECESSARY
     Route: 054
     Dates: start: 201506
  8. PROCTOSEDYL [Concomitant]
     Active Substance: DIBUCAINE HYDROCHLORIDE\HYDROCORTISONE
     Dosage: AS NECESSARY
     Route: 061
  9. CORTIMENT [Concomitant]
     Indication: CROHN^S DISEASE
     Route: 048
     Dates: start: 201801
  10. SALOFALK [Concomitant]
     Route: 054
     Dates: start: 201506
  11. MICRONOR [Concomitant]
     Active Substance: NORETHINDRONE
     Indication: CONTRACEPTION
     Route: 065

REACTIONS (9)
  - Crohn^s disease [Unknown]
  - Abnormal faeces [Unknown]
  - Bone density decreased [Unknown]
  - Arthralgia [Unknown]
  - Nasopharyngitis [Unknown]
  - Drug ineffective [Unknown]
  - Atelectasis [Unknown]
  - Erythema nodosum [Recovered/Resolved]
  - Lung opacity [Unknown]

NARRATIVE: CASE EVENT DATE: 201911
